FAERS Safety Report 16249869 (Version 1)
Quarter: 2019Q2

REPORT INFORMATION
  Report Type: Spontaneous
  Country: US (occurrence: US)
  Receive Date: 20190325
  Receipt Date: 20190325
  Transmission Date: 20190711
  Serious: No
  Sender: FDA-Public Use
  Company Number: None

PATIENT
  Age: 76 Year
  Sex: Male

DRUGS (2)
  1. IBRANCE [Concomitant]
     Active Substance: PALBOCICLIB
  2. LETROZOLE TAB 2.5MG [Suspect]
     Active Substance: LETROZOLE
     Dates: start: 20190206

REACTIONS (2)
  - Increased appetite [None]
  - Weight increased [None]

NARRATIVE: CASE EVENT DATE: 20190218
